FAERS Safety Report 8337342-3 (Version None)
Quarter: 2012Q2

REPORT INFORMATION
  Report Type: 
  Country: None (occurrence: None)
  Receive Date: 20120504
  Receipt Date: 20120424
  Transmission Date: 20120825
  Serious: Yes (Other)
  Sender: FDA-Public Use
  Company Number: JP-FRI-1000030140

PATIENT
  Sex: Male

DRUGS (5)
  1. REFLEX [Concomitant]
     Route: 048
     Dates: start: 20120222
  2. ROHYPNOL [Concomitant]
     Route: 065
  3. LEXAPRO [Suspect]
     Indication: DEPRESSION
     Dosage: 20 MG
     Route: 048
     Dates: start: 20120208, end: 20120307
  4. TRAZODONE HYDROCHLORIDE [Concomitant]
     Route: 048
  5. GASMOTIN [Concomitant]
     Route: 048
     Dates: end: 20120221

REACTIONS (1)
  - BLOOD TRIGLYCERIDES INCREASED [None]
